FAERS Safety Report 18745878 (Version 2)
Quarter: 2021Q1

REPORT INFORMATION
  Report Type: Report from Study
  Country: None (occurrence: NL)
  Receive Date: 20210115
  Receipt Date: 20210118
  Transmission Date: 20210419
  Serious: Yes (Death, Other)
  Sender: FDA-Public Use
  Company Number: NL-ABBVIE-19K-114-2860329-00

PATIENT
  Sex: Male
  Weight: 86.7 kg

DRUGS (5)
  1. MOVICOLON [Concomitant]
     Active Substance: POLYETHYLENE GLYCOL 3350\POTASSIUM CHLORIDE\SODIUM BICARBONATE\SODIUM CHLORIDE
     Indication: ABNORMAL FAECES
     Route: 048
  2. DUODOPA [Suspect]
     Active Substance: CARBIDOPA\LEVODOPA
     Dosage: CD 2.0 ML/H; ED:2.0 ML?REMAINS 24 HRS
     Route: 050
  3. LACTULOSE. [Concomitant]
     Active Substance: LACTULOSE
     Indication: ABNORMAL FAECES
  4. DUODOPA [Suspect]
     Active Substance: CARBIDOPA\LEVODOPA
     Indication: PARKINSON^S DISEASE
     Dosage: MD: 13.0 ML; CD 5.0 ML/H; ED:2.0 ML; CDN 2.0 ML/H; END 2.0?REMAINS 24 HRS
     Route: 050
     Dates: start: 20150601
  5. DUODOPA [Suspect]
     Active Substance: CARBIDOPA\LEVODOPA
     Route: 050

REACTIONS (36)
  - Memory impairment [Not Recovered/Not Resolved]
  - Obsessive-compulsive disorder [Not Recovered/Not Resolved]
  - Condition aggravated [Unknown]
  - Dyskinesia [Recovered/Resolved]
  - Therapeutic product effect decreased [Not Recovered/Not Resolved]
  - Speech disorder [Not Recovered/Not Resolved]
  - Dysuria [Not Recovered/Not Resolved]
  - Pneumonia [Not Recovered/Not Resolved]
  - Abdominal rigidity [Not Recovered/Not Resolved]
  - Abnormal faeces [Not Recovered/Not Resolved]
  - Dyschezia [Not Recovered/Not Resolved]
  - Stress [Not Recovered/Not Resolved]
  - Fatigue [Recovered/Resolved]
  - Stoma site pain [Not Recovered/Not Resolved]
  - Hallucination [Not Recovered/Not Resolved]
  - Bladder cancer [Not Recovered/Not Resolved]
  - Decreased appetite [Not Recovered/Not Resolved]
  - Tremor [Not Recovered/Not Resolved]
  - Musculoskeletal stiffness [Not Recovered/Not Resolved]
  - Diarrhoea [Not Recovered/Not Resolved]
  - Slow speech [Not Recovered/Not Resolved]
  - Memory impairment [Unknown]
  - Blood urine present [Not Recovered/Not Resolved]
  - Tension [Not Recovered/Not Resolved]
  - Abdominal distension [Not Recovered/Not Resolved]
  - Stoma site erythema [Not Recovered/Not Resolved]
  - Stoma site discharge [Not Recovered/Not Resolved]
  - On and off phenomenon [Not Recovered/Not Resolved]
  - Death [Fatal]
  - Urinary tract infection [Unknown]
  - Abnormal dreams [Not Recovered/Not Resolved]
  - Depressed mood [Not Recovered/Not Resolved]
  - Muscle rigidity [Not Recovered/Not Resolved]
  - Sepsis [Not Recovered/Not Resolved]
  - Ageusia [Not Recovered/Not Resolved]
  - Fatigue [Not Recovered/Not Resolved]

NARRATIVE: CASE EVENT DATE: 2019
